FAERS Safety Report 7675296-3 (Version None)
Quarter: 2011Q3

REPORT INFORMATION
  Report Type: 
  Country: None (occurrence: None)
  Receive Date: 20110810
  Receipt Date: 20110727
  Transmission Date: 20111222
  Serious: Yes (Hospitalization, Other)
  Sender: FDA-Public Use
  Company Number: US-UCBSA-032674

PATIENT
  Age: 60 Year
  Sex: Female
  Weight: 70.3 kg

DRUGS (15)
  1. LASIX [Suspect]
     Dosage: 20 MG
     Dates: start: 20090924
  2. FOLIC ACID [Concomitant]
  3. ADVAIR DISKUS 100/50 [Concomitant]
  4. WARFARIN SODIUM [Concomitant]
  5. INVESTIGATIONAL DRUG [Suspect]
     Indication: RHEUMATOID ARTHRITIS
     Route: 048
     Dates: start: 20080122, end: 20090831
  6. CARVEDILOL [Concomitant]
  7. PREDNISONE [Concomitant]
  8. METOLAZONE [Suspect]
     Indication: DIURETIC THERAPY
     Dosage: 2.5 MG, 1 X /DAY MON, WED AND FRI
     Dates: start: 20090727, end: 20090916
  9. METOLAZONE [Suspect]
     Dosage: 2.5 MG
     Dates: start: 20090924
  10. MONTELUKAST SODIUM [Concomitant]
  11. LORTAB [Concomitant]
  12. INVESTIGATIONAL DRUG [Suspect]
     Route: 048
     Dates: start: 20090902, end: 20090916
  13. SPIRONOLACTONE [Suspect]
     Indication: DIURETIC THERAPY
     Dates: end: 20090916
  14. LASIX [Suspect]
     Indication: DIURETIC THERAPY
     Route: 048
     Dates: start: 19910101, end: 20090916
  15. METHOTREXATE [Concomitant]

REACTIONS (3)
  - RENAL FAILURE ACUTE [None]
  - DIARRHOEA [None]
  - NAUSEA [None]
